FAERS Safety Report 8384914-6 (Version None)
Quarter: 2012Q2

REPORT INFORMATION
  Report Type: 
  Country: None (occurrence: None)
  Receive Date: 20120524
  Receipt Date: 20120516
  Transmission Date: 20120825
  Serious: Yes (Other)
  Sender: FDA-Public Use
  Company Number: GB-FRI-1000030676

PATIENT
  Sex: Female

DRUGS (3)
  1. MEMANTINE HCL [Suspect]
     Dosage: 10 MG
     Route: 048
  2. TEMAZEPAM [Concomitant]
     Indication: SLEEP DISORDER
  3. MEMANTINE HCL [Suspect]
     Indication: DEMENTIA ALZHEIMER'S TYPE
     Route: 048
     Dates: start: 20120501

REACTIONS (2)
  - ALTERED STATE OF CONSCIOUSNESS [None]
  - SOMNOLENCE [None]
